FAERS Safety Report 21957863 (Version 1)
Quarter: 2023Q1

REPORT INFORMATION
  Report Type: Spontaneous
  Country: CA (occurrence: CA)
  Receive Date: 20230206
  Receipt Date: 20230206
  Transmission Date: 20230418
  Serious: Yes (Hospitalization, Other)
  Sender: FDA-Public Use
  Company Number: CA-PFIZER INC-202300047523

PATIENT
  Age: 2 Year
  Sex: Male
  Weight: 13 kg

DRUGS (4)
  1. RITUXIMAB [Suspect]
     Active Substance: RITUXIMAB
     Indication: Nephrotic syndrome
     Dosage: 460 MG
     Route: 041
  2. ACETAMINOPHEN [Concomitant]
     Active Substance: ACETAMINOPHEN
     Dosage: UNK
  3. FLUOCINONIDE [Concomitant]
     Active Substance: FLUOCINONIDE
     Dosage: UNK
  4. TACROLIMUS [Concomitant]
     Active Substance: TACROLIMUS
     Dosage: UNK

REACTIONS (11)
  - Febrile neutropenia [Recovered/Resolved]
  - Cough [Recovered/Resolved]
  - Mouth ulceration [Recovered/Resolved]
  - Papule [Recovered/Resolved]
  - Petechiae [Recovered/Resolved]
  - Pharyngeal erythema [Recovered/Resolved]
  - Post-tussive vomiting [Recovered/Resolved]
  - Rhinorrhoea [Recovered/Resolved]
  - Tongue ulceration [Recovered/Resolved]
  - Off label use [Unknown]
  - Off label use [Unknown]
